FAERS Safety Report 22531678 (Version 2)
Quarter: 2023Q2

REPORT INFORMATION
  Report Type: Spontaneous
  Country: CN (occurrence: CN)
  Receive Date: 20230607
  Receipt Date: 20230616
  Transmission Date: 20230721
  Serious: Yes (Other)
  Sender: FDA-Public Use
  Company Number: CN-BRACCO-2023CN02673

PATIENT
  Age: 49 Year
  Sex: Male

DRUGS (3)
  1. SULFUR HEXAFLUORIDE [Suspect]
     Active Substance: SULFUR HEXAFLUORIDE
     Indication: Ultrasound thyroid
     Dosage: 1 ML, SINGLE
     Route: 042
     Dates: start: 20230530, end: 20230530
  2. SULFUR HEXAFLUORIDE [Suspect]
     Active Substance: SULFUR HEXAFLUORIDE
     Indication: Ultrasound thyroid
     Dosage: 1 ML, SINGLE
     Route: 042
     Dates: start: 20230530, end: 20230530
  3. SULFUR HEXAFLUORIDE [Suspect]
     Active Substance: SULFUR HEXAFLUORIDE
     Indication: Ultrasound thyroid
     Dosage: 1 ML, SINGLE
     Route: 042
     Dates: start: 20230530, end: 20230530

REACTIONS (4)
  - Loss of consciousness [Unknown]
  - Trismus [Unknown]
  - Movement disorder [Unknown]
  - Cyanosis [Unknown]

NARRATIVE: CASE EVENT DATE: 20230530
